FAERS Safety Report 4280438-6 (Version None)
Quarter: 2004Q1

REPORT INFORMATION
  Report Type: 
  Country: None (occurrence: None)
  Receive Date: 20040126
  Receipt Date: 20040109
  Transmission Date: 20041129
  Serious: Yes (Death, Hospitalization)
  Sender: FDA-Public Use
  Company Number: 2004UW00605

PATIENT
  Age: 39 Year
  Sex: Female

DRUGS (13)
  1. CRESTOR [Suspect]
     Dosage: 20 MG HS PO
     Route: 048
     Dates: start: 20031101
  2. ZYPREXA [Concomitant]
  3. ALDACTONE [Concomitant]
  4. TEGRETOL [Concomitant]
  5. HYDROXYZINE [Concomitant]
  6. COGENTIN [Concomitant]
  7. DITROPAN [Concomitant]
  8. LASIX [Concomitant]
  9. XANAX [Concomitant]
  10. PREVACID [Concomitant]
  11. NEURONTIN [Concomitant]
  12. ZANTAC [Concomitant]
  13. VICODIN [Concomitant]

REACTIONS (7)
  - ACIDOSIS [None]
  - DECREASED APPETITE [None]
  - DEHYDRATION [None]
  - DIALYSIS [None]
  - HYPERKALAEMIA [None]
  - RENAL FAILURE [None]
  - RHABDOMYOLYSIS [None]
